FAERS Safety Report 5454799-6 (Version None)
Quarter: 2007Q3

REPORT INFORMATION
  Report Type: 
  Country: None (occurrence: None)
  Receive Date: 20070917
  Receipt Date: 20070904
  Transmission Date: 20080115
  Serious: No
  Sender: FDA-Public Use
  Company Number: US-BOEHRINGER INGELHEIM PHARMACEUTICALS, INC.-2007-BP-20515BP

PATIENT
  Age: 84 Year
  Sex: Female

DRUGS (2)
  1. SPIRIVA [Suspect]
     Indication: EMPHYSEMA
     Route: 055
     Dates: start: 20020101
  2. AFRIN [Concomitant]

REACTIONS (3)
  - LACRIMATION INCREASED [None]
  - OCULAR HYPERAEMIA [None]
  - SKIN EXFOLIATION [None]
